FAERS Safety Report 4621948-9 (Version None)
Quarter: 2005Q1

REPORT INFORMATION
  Report Type: 
  Country: None (occurrence: None)
  Receive Date: 20050329
  Receipt Date: 20050324
  Transmission Date: 20050727
  Serious: Yes (Other)
  Sender: FDA-Public Use
  Company Number: PHEH2005US03602

PATIENT
  Age: 2 Year
  Sex: Male

DRUGS (1)
  1. ELIDEL [Suspect]
     Indication: ECZEMA
     Route: 061
     Dates: start: 20010101

REACTIONS (1)
  - NON-HODGKIN'S LYMPHOMA [None]
